FAERS Safety Report 7755106-6 (Version None)
Quarter: 2011Q3

REPORT INFORMATION
  Report Type: 
  Country: None (occurrence: None)
  Receive Date: 20110913
  Receipt Date: 20110907
  Transmission Date: 20111222
  Serious: Yes (Death)
  Sender: FDA-Public Use
  Company Number: DKLU1072629

PATIENT
  Age: 17 Year
  Sex: Female

DRUGS (5)
  1. SABRIL [Suspect]
     Indication: GENERALISED NON-CONVULSIVE EPILEPSY
     Dosage: 2500 MG MILLIGRAM(S), 2 IN 1 D, ORAL
     Route: 048
  2. BANZEL (RUFINAMIDE) [Concomitant]
  3. DIASTAT [Concomitant]
  4. ATIVAN [Concomitant]
  5. LAMICTAL [Concomitant]

REACTIONS (1)
  - DEATH [None]
